FAERS Safety Report 5917113-5 (Version None)
Quarter: 2008Q4

REPORT INFORMATION
  Report Type: 
  Country: None (occurrence: None)
  Receive Date: 20081014
  Receipt Date: 20080929
  Transmission Date: 20090506
  Serious: Yes (Hospitalization)
  Sender: FDA-Public Use
  Company Number: FR-ELI_LILLY_AND_COMPANY-FR200805000885

PATIENT
  Age: 62 Year
  Sex: Female
  Weight: 63 kg

DRUGS (8)
  1. FORTEO [Suspect]
     Indication: OSTEOPOROSIS
     Dosage: 20 UG, DAILY (1/D)
     Route: 058
     Dates: start: 20070521
  2. METHOTREXATE [Concomitant]
     Indication: POLYARTHRITIS
     Dosage: 15 MG, WEEKLY (1/W)
     Route: 048
     Dates: start: 19890101
  3. SPECIAFOLDINE [Concomitant]
     Indication: POLYARTHRITIS
     Dosage: 2 G, WEEKLY (1/W)
     Route: 048
     Dates: start: 19890101
  4. CORTANCYL [Concomitant]
     Indication: POLYARTHRITIS
     Dosage: 10 MG, UNKNOWN
     Route: 048
     Dates: start: 19890101
  5. NEXIUM [Concomitant]
     Indication: PROPHYLAXIS
     Dosage: 20 MG, UNKNOWN
     Route: 048
     Dates: start: 20070101
  6. OROCAL VITAMIN D [Concomitant]
     Indication: OSTEOPOROSIS
     Dosage: 2 D/F, DAILY (1/D)
     Route: 048
     Dates: start: 19890101
  7. ACETAMINOPHEN [Concomitant]
     Indication: ARTHRALGIA
     Dosage: 6 D/F, UNKNOWN
     Route: 048
  8. MIANSERIN [Concomitant]
     Indication: DEPRESSION
     Dosage: 2 D/F, DAILY (1/D)
     Route: 048
     Dates: start: 19890101

REACTIONS (3)
  - ACCIDENT AT HOME [None]
  - FALL [None]
  - HUMERUS FRACTURE [None]
